FAERS Safety Report 12946755 (Version 1)
Quarter: 2016Q4

REPORT INFORMATION
  Report Type: Spontaneous
  Country: DZ (occurrence: DZ)
  Receive Date: 20161116
  Receipt Date: 20161116
  Transmission Date: 20170207
  Serious: Yes (Life-Threatening)
  Sender: FDA-Public Use
  Company Number: PHHY2016DZ153527

PATIENT
  Age: 60 Year
  Sex: Female

DRUGS (2)
  1. AMLIBON [Suspect]
     Active Substance: AMLODIPINE BESYLATE
     Indication: HYPERTENSION
     Dosage: 10 MG, ONCE/SINGLE
     Route: 048
     Dates: start: 20161012, end: 20161012
  2. HYTACAND [Concomitant]
     Active Substance: CANDESARTAN CILEXETIL\HYDROCHLOROTHIAZIDE
     Indication: HYPERTENSION
     Route: 065
     Dates: start: 20161012, end: 20161012

REACTIONS (2)
  - Drug interaction [Unknown]
  - Oedema [Unknown]

NARRATIVE: CASE EVENT DATE: 20161012
